FAERS Safety Report 8837836 (Version 2)
Quarter: 2013Q2

REPORT INFORMATION
  Report Type: Report from Study
  Country: JP (occurrence: JP)
  Receive Date: 20121012
  Receipt Date: 20130412
  Transmission Date: 20140414
  Serious: Yes (Other)
  Sender: FDA-Public Use
  Company Number: JP-VERTEX PHARMACEUTICAL INC.-2012-022598

PATIENT
  Age: 53 Year
  Sex: Male

DRUGS (9)
  1. VX-950 (TELAPREVIR) [Suspect]
     Indication: CHRONIC HEPATITIS C
     Dosage: 2250 MG, QD
     Route: 048
     Dates: start: 20120702, end: 20120808
  2. VX-950 (TELAPREVIR) [Suspect]
     Dosage: 1500 MG, QD
     Route: 048
     Dates: start: 20120809, end: 20120924
  3. RIBAVIRIN [Suspect]
     Indication: CHRONIC HEPATITIS C
     Dosage: 800 MG, QD
     Route: 048
     Dates: start: 20120702, end: 20121217
  4. PEGINTRON /01543001/ [Suspect]
     Indication: CHRONIC HEPATITIS C
     Dosage: 1.5 ?G/KG, QW
     Route: 058
     Dates: start: 20120702, end: 20121210
  5. CORINAEL L [Concomitant]
     Dosage: 20 MG, QD
     Route: 048
  6. P MAGEN [Concomitant]
     Dosage: 3.6 G, QD
     Route: 048
  7. LANIZAC [Concomitant]
     Dosage: 10 MG, QD
     Route: 048
     Dates: end: 20120707
  8. ALUSA                              /00487801/ [Concomitant]
     Dosage: 300 MG, QD
     Route: 048
     Dates: end: 20120707
  9. ALUSA                              /00487801/ [Concomitant]
     Dosage: 300 MG, QD
     Route: 048
     Dates: start: 20120723

REACTIONS (1)
  - Retinal haemorrhage [Recovered/Resolved]
